FAERS Safety Report 9573589 (Version 2)
Quarter: 2013Q4

REPORT INFORMATION
  Report Type: Spontaneous
  Country: US (occurrence: US)
  Receive Date: 20131001
  Receipt Date: 20131018
  Transmission Date: 20140711
  Serious: No
  Sender: FDA-Public Use
  Company Number: US-PFIZER INC-2013278887

PATIENT
  Age: 72 Year
  Sex: Male
  Weight: 65.76 kg

DRUGS (4)
  1. LIPITOR [Suspect]
     Indication: BLOOD CHOLESTEROL INCREASED
     Dosage: 20 MG, 1X/DAY
     Route: 048
     Dates: end: 20130923
  2. ATORVASTATIN CALCIUM [Suspect]
     Indication: BLOOD CHOLESTEROL INCREASED
     Dosage: 20 MG, 1X/DAY
     Route: 048
     Dates: start: 20130924, end: 20130925
  3. CALCIUM [Concomitant]
     Dosage: UNK
  4. VITAMIN C [Concomitant]
     Dosage: UNK

REACTIONS (8)
  - Tooth disorder [Recovering/Resolving]
  - Gingivitis [Recovering/Resolving]
  - Malaise [Recovered/Resolved]
  - Somnolence [Recovered/Resolved]
  - Mental disorder [Unknown]
  - Mental disorder [Unknown]
  - Product substitution issue [Unknown]
  - Somnolence [Unknown]
